FAERS Safety Report 7328529-7 (Version None)
Quarter: 2011Q1

REPORT INFORMATION
  Report Type: 
  Country: None (occurrence: None)
  Receive Date: 20110303
  Receipt Date: 20110121
  Transmission Date: 20110831
  Serious: No
  Sender: FDA-Public Use
  Company Number: US-B.I. PHARMACEUTICALS,INC./RIDGEFIELD-2011-BP-02158BP

PATIENT
  Sex: Male

DRUGS (12)
  1. CRESTOR [Concomitant]
     Indication: BLOOD CHOLESTEROL INCREASED
     Dosage: 10 MG
     Route: 048
  2. METOPROLOL [Concomitant]
     Indication: HYPERTENSION
     Dosage: 200 MG
     Route: 048
  3. PENTASA [Concomitant]
     Indication: CROHN'S DISEASE
     Dosage: 2 G
     Route: 048
  4. PRADAXA [Suspect]
     Indication: ATRIAL FIBRILLATION
     Dosage: 300 MG
     Route: 048
     Dates: start: 20110118
  5. PRADAXA [Suspect]
     Indication: ANTICOAGULANT THERAPY
  6. PLAVIX [Concomitant]
     Dosage: 75 MG
     Route: 048
  7. ASCORBIC ACID [Concomitant]
     Indication: ROUTINE HEALTH MAINTENANCE
     Dosage: 1 G
     Route: 048
  8. FISH OIL [Concomitant]
     Indication: ROUTINE HEALTH MAINTENANCE
     Dosage: 6 G
     Route: 048
  9. SERTRALINE [Concomitant]
     Indication: DEPRESSION
     Dosage: 100 MG
     Route: 048
  10. VITAMIN D [Concomitant]
     Indication: ROUTINE HEALTH MAINTENANCE
     Route: 048
  11. LOTREL [Concomitant]
     Indication: HYPERTENSION
     Route: 048
  12. PROTONIX [Concomitant]
     Dosage: 40 MG
     Route: 048

REACTIONS (5)
  - DEPRESSION [None]
  - DISTURBANCE IN ATTENTION [None]
  - FEELING JITTERY [None]
  - FEELING ABNORMAL [None]
  - SUICIDAL IDEATION [None]
